FAERS Safety Report 4764276-3 (Version None)
Quarter: 2005Q3

REPORT INFORMATION
  Report Type: 
  Country: None (occurrence: None)
  Receive Date: 20050907
  Receipt Date: 20050907
  Transmission Date: 20060218
  Serious: No
  Sender: FDA-Public Use
  Company Number: None

PATIENT
  Age: 67 Year
  Sex: Female
  Weight: 65.7716 kg

DRUGS (3)
  1. ALBUTEROL SULFATE HFA [Suspect]
     Indication: ASTHMA
     Dosage: 2 INHALATIONS TID OR PRN
     Dates: start: 20050724, end: 20050729
  2. ALBUTEROL SULFATE HFA [Suspect]
  3. ALBUTEROL [Concomitant]

REACTIONS (4)
  - CANDIDIASIS [None]
  - PHARMACEUTICAL PRODUCT COMPLAINT [None]
  - RESPIRATION ABNORMAL [None]
  - RESPIRATORY TRACT CONGESTION [None]
